FAERS Safety Report 9301004 (Version 1)
Quarter: 2013Q2

REPORT INFORMATION
  Report Type: Spontaneous
  Country: US (occurrence: US)
  Receive Date: 20130521
  Receipt Date: 20130521
  Transmission Date: 20140414
  Serious: No
  Sender: FDA-Public Use
  Company Number: US-PFIZER INC-2013150844

PATIENT
  Age: 58 Year
  Sex: Female

DRUGS (10)
  1. ATROPINE SULFATE [Suspect]
     Dosage: UNK
  2. CODEINE [Suspect]
     Dosage: UNK
  3. E-MYCIN [Suspect]
     Dosage: UNK
  4. COMPAZINE [Suspect]
     Dosage: UNK
  5. AUGMENTIN [Suspect]
     Dosage: UNK
  6. DARVOCET [Suspect]
     Dosage: UNK
  7. LEVAQUIN [Suspect]
     Dosage: UNK
  8. VERSED [Suspect]
     Dosage: UNK
  9. ULTRAM [Suspect]
     Dosage: UNK
  10. NALFON [Suspect]
     Dosage: UNK

REACTIONS (1)
  - Drug hypersensitivity [Unknown]
